FAERS Safety Report 23045751 (Version 2)
Quarter: 2023Q4

REPORT INFORMATION
  Report Type: Report from Study
  Country: AR (occurrence: AR)
  Receive Date: 20231009
  Receipt Date: 20231214
  Transmission Date: 20240109
  Serious: Yes (Other)
  Sender: FDA-Public Use
  Company Number: AR-002147023-NVSC2020AR133722

PATIENT
  Age: 56 Year
  Sex: Male

DRUGS (2)
  1. COSENTYX [Suspect]
     Active Substance: SECUKINUMAB
     Indication: Psoriasis
     Dosage: 300 MG, QMO
     Route: 058
     Dates: start: 20191223
  2. COSENTYX [Suspect]
     Active Substance: SECUKINUMAB
     Indication: Psoriatic arthropathy

REACTIONS (23)
  - Cataract [Unknown]
  - Agitation [Recovering/Resolving]
  - Influenza like illness [Recovering/Resolving]
  - Headache [Recovering/Resolving]
  - Photophobia [Recovering/Resolving]
  - Skin plaque [Unknown]
  - Influenza [Unknown]
  - Oropharyngeal pain [Unknown]
  - Malaise [Unknown]
  - Spinal pain [Unknown]
  - Pyrexia [Unknown]
  - Skin fissures [Recovering/Resolving]
  - Arthralgia [Recovering/Resolving]
  - Pain [Recovered/Resolved]
  - Lithiasis [Unknown]
  - Injection site pain [Unknown]
  - Fungal infection [Unknown]
  - Conjunctivitis [Recovering/Resolving]
  - Back pain [Unknown]
  - Psoriasis [Recovering/Resolving]
  - Inflammation [Unknown]
  - White blood cell count decreased [Unknown]
  - Drug ineffective [Not Recovered/Not Resolved]

NARRATIVE: CASE EVENT DATE: 20191223
